FAERS Safety Report 20746329 (Version 1)
Quarter: 2022Q2

REPORT INFORMATION
  Report Type: Spontaneous
  Country: US (occurrence: US)
  Receive Date: 20220425
  Receipt Date: 20220425
  Transmission Date: 20220721
  Serious: Yes (Death)
  Sender: FDA-Public Use
  Company Number: US-PFIZER INC-202101758076

PATIENT
  Age: 81 Year
  Sex: Male
  Weight: 49.9 kg

DRUGS (2)
  1. VFEND [Suspect]
     Active Substance: VORICONAZOLE
     Indication: Infection
     Dosage: 200 MG, 2X/DAY
     Route: 048
     Dates: start: 2021
  2. VENCLEXTA [Concomitant]
     Active Substance: VENETOCLAX
     Dosage: 100 MG

REACTIONS (3)
  - Leukaemia [Fatal]
  - Illness [Fatal]
  - Dysphagia [Unknown]

NARRATIVE: CASE EVENT DATE: 20210101
